FAERS Safety Report 8051314-8 (Version None)
Quarter: 2012Q1

REPORT INFORMATION
  Report Type: 
  Country: None (occurrence: None)
  Receive Date: 20120117
  Receipt Date: 20120110
  Transmission Date: 20120608
  Serious: Yes (Other)
  Sender: FDA-Public Use
  Company Number: US-ASTRAZENECA-2011SE75675

PATIENT
  Age: 65 Year
  Sex: Male

DRUGS (16)
  1. KLONOPIN [Concomitant]
     Route: 048
  2. SYNTHROID [Concomitant]
     Route: 048
  3. PRILOSEC [Concomitant]
     Route: 048
  4. ZESTRIL [Concomitant]
     Route: 048
  5. TOPROL-XL [Concomitant]
     Route: 048
  6. LASIX [Concomitant]
     Route: 048
  7. LOVAZA [Concomitant]
     Route: 048
  8. CELEXA [Concomitant]
     Route: 048
  9. NITROSTAT [Concomitant]
     Route: 060
  10. IMDUR [Concomitant]
     Route: 048
  11. ALDACTONE [Concomitant]
     Route: 048
  12. PRINIVIL [Concomitant]
     Route: 048
  13. CRESTOR [Suspect]
     Route: 048
  14. TRILIPIX [Concomitant]
     Route: 048
  15. ASPIRIN [Concomitant]
     Route: 048
  16. LANOXIN [Concomitant]
     Route: 048

REACTIONS (7)
  - MUSCLE DISORDER [None]
  - CARDIAC FUNCTION TEST ABNORMAL [None]
  - LIVER FUNCTION TEST ABNORMAL [None]
  - BLOOD TRIGLYCERIDES INCREASED [None]
  - BLOOD CHOLESTEROL INCREASED [None]
  - ARTHROPATHY [None]
  - ADVERSE EVENT [None]
